FAERS Safety Report 6963983-1 (Version None)
Quarter: 2010Q3

REPORT INFORMATION
  Report Type: 
  Country: None (occurrence: None)
  Receive Date: 20100902
  Receipt Date: 20100902
  Transmission Date: 20110219
  Serious: Yes (Hospitalization)
  Sender: FDA-Public Use
  Company Number: None

PATIENT
  Age: 16 Year
  Sex: Female
  Weight: 64.3 kg

DRUGS (1)
  1. SEASONIQUE [Suspect]
     Indication: ENDOMETRIOSIS
     Dosage: 1 TAB 1QDAY PO 4-5 MONTHS
     Route: 048

REACTIONS (3)
  - BACK PAIN [None]
  - PULMONARY EMBOLISM [None]
  - PYREXIA [None]
